FAERS Safety Report 12224196 (Version 1)
Quarter: 2016Q1

REPORT INFORMATION
  Report Type: Spontaneous
  Country: DK (occurrence: NO)
  Receive Date: 20160330
  Receipt Date: 20160330
  Transmission Date: 20160526
  Serious: Yes (Disabling)
  Sender: FDA-Public Use
  Company Number: NO-FRI-1000083461

PATIENT
  Age: 35 Year
  Sex: Male
  Weight: 70 kg

DRUGS (2)
  1. ESCITALOPRAM [Suspect]
     Active Substance: ESCITALOPRAM OXALATE
     Indication: DEPRESSION
     Route: 065
  2. ESCITALOPRAM [Suspect]
     Active Substance: ESCITALOPRAM OXALATE
     Dosage: 180 G
     Route: 065
     Dates: start: 20100404

REACTIONS (7)
  - Nausea [Recovered/Resolved with Sequelae]
  - Pain [Recovering/Resolving]
  - Insomnia [Recovered/Resolved with Sequelae]
  - Yellow skin [Recovered/Resolved with Sequelae]
  - Abdominal pain upper [Recovering/Resolving]
  - Sleep disorder [Recovering/Resolving]
  - Asthenia [Recovering/Resolving]

NARRATIVE: CASE EVENT DATE: 20110201
